FAERS Safety Report 7552786-5 (Version None)
Quarter: 2011Q2

REPORT INFORMATION
  Report Type: 
  Country: None (occurrence: None)
  Receive Date: 20110616
  Receipt Date: 20110613
  Transmission Date: 20111010
  Serious: Yes (Life-Threatening, Hospitalization)
  Sender: FDA-Public Use
  Company Number: US-US-EMD SERONO, INC.-7043471

PATIENT
  Sex: Male

DRUGS (14)
  1. CYTOXAN [Concomitant]
     Indication: MULTIPLE SCLEROSIS
     Dates: start: 20060101, end: 20061219
  2. PROZAC [Concomitant]
     Indication: DEPRESSION
     Dates: start: 20061219, end: 20070609
  3. ZOFRAN [Concomitant]
     Indication: PROPHYLAXIS
     Dates: start: 20061201, end: 20070401
  4. SOLU-MEDROL [Concomitant]
     Dates: start: 20071001, end: 20071001
  5. PROZAC [Concomitant]
     Dates: start: 20070918
  6. SOLU-MEDROL [Concomitant]
     Indication: MULTIPLE SCLEROSIS
     Dosage: 1 GRAM MONTHLY
     Dates: start: 20060101, end: 20070401
  7. CYTOXAN [Concomitant]
     Dates: start: 20061219, end: 20070401
  8. PROZAC [Concomitant]
     Dates: start: 20080115
  9. SOLU-MEDROL [Concomitant]
     Dates: start: 20070601, end: 20070605
  10. SOLU-MEDROL [Concomitant]
     Dates: start: 20071221, end: 20071223
  11. NOVANTRONE [Concomitant]
     Indication: MULTIPLE SCLEROSIS
     Dates: start: 20050101, end: 20050601
  12. REBIF [Suspect]
     Indication: MULTIPLE SCLEROSIS
     Route: 058
     Dates: start: 20041201, end: 20060101
  13. REBIF [Suspect]
     Route: 058
     Dates: start: 20060101, end: 20070609
  14. PROVIGIL [Concomitant]
     Indication: FATIGUE
     Dates: start: 20061219, end: 20070601

REACTIONS (1)
  - IDIOPATHIC THROMBOCYTOPENIC PURPURA [None]
